FAERS Safety Report 10238959 (Version 2)
Quarter: 2014Q2

REPORT INFORMATION
  Report Type: Spontaneous
  Country: CH (occurrence: CH)
  Receive Date: 20140616
  Receipt Date: 20140616
  Transmission Date: 20141212
  Serious: Yes (Death, Hospitalization)
  Sender: FDA-Public Use
  Company Number: CH-BAYER-2014-072201

PATIENT
  Age: 73 Year
  Sex: Male
  Weight: 89 kg

DRUGS (6)
  1. XARELTO [Suspect]
     Indication: ATRIAL FIBRILLATION
     Dosage: 20 MG, QD
     Route: 048
     Dates: start: 20131211, end: 20140411
  2. XARELTO [Interacting]
     Indication: CEREBROVASCULAR ACCIDENT PROPHYLAXIS
  3. XARELTO [Interacting]
     Indication: TACHYCARDIA
  4. ASPIRIN CARDIO [Suspect]
     Indication: ATRIAL FIBRILLATION
     Dosage: 100 MG, UNK
     Route: 048
  5. ASPIRIN CARDIO [Suspect]
     Indication: TACHYCARDIA
  6. DILZEM [Interacting]
     Dosage: 90 MG, BID

REACTIONS (4)
  - Cerebral haemorrhage [Fatal]
  - Fall [Not Recovered/Not Resolved]
  - Depressed level of consciousness [Fatal]
  - Coma [Fatal]
